FAERS Safety Report 20430549 (Version 1)
Quarter: 2022Q1

REPORT INFORMATION
  Report Type: Report from Study
  Country: FR (occurrence: FR)
  Receive Date: 20220204
  Receipt Date: 20220204
  Transmission Date: 20220423
  Serious: Yes (Life-Threatening, Hospitalization)
  Sender: FDA-Public Use
  Company Number: FR-SERVIER-S20010189

PATIENT

DRUGS (8)
  1. PEGASPARGASE [Suspect]
     Active Substance: PEGASPARGASE
     Indication: Acute lymphocytic leukaemia
     Dosage: 750 IU QD, ON D15 AND D43 (DELAYED)
     Route: 042
     Dates: start: 20200802, end: 20200902
  2. VINCRISTINE [Suspect]
     Active Substance: VINCRISTINE
     Indication: Acute lymphocytic leukaemia
     Dosage: 0.9 MG, ON D15, D22, AND D43 (DELAYED)
     Route: 042
     Dates: start: 20200802, end: 20200902
  3. CYTARABINE [Suspect]
     Active Substance: CYTARABINE
     Indication: Acute lymphocytic leukaemia
     Dosage: 45 MG ON D3 TO D6, D10 TO D13, D31 TO D34, AND D38 TO D41
     Route: 042
     Dates: start: 20200721, end: 20200828
  4. CYTARABINE [Suspect]
     Active Substance: CYTARABINE
     Dosage: 25 MG, ON D3 AND D31
     Route: 037
     Dates: start: 20200721, end: 20200818
  5. METHOTREXATE [Suspect]
     Active Substance: METHOTREXATE
     Indication: Acute lymphocytic leukaemia
     Dosage: 10 MG ON D3 AND D31
     Route: 037
     Dates: start: 20200721, end: 20200818
  6. METHYLPREDNISOLONE [Suspect]
     Active Substance: METHYLPREDNISOLONE
     Indication: Acute lymphocytic leukaemia
     Dosage: 12.5 MG, ON DAYS 3 AND 31
     Route: 037
     Dates: start: 20200721, end: 20200818
  7. CYCLOPHOSPHAMIDE [Suspect]
     Active Substance: CYCLOPHOSPHAMIDE
     Indication: Acute lymphocytic leukaemia
     Dosage: 600 MG, ON DAYS 1 AND 29
     Route: 048
     Dates: start: 20200719, end: 20200816
  8. TN UNSPECIFIED [Concomitant]
     Indication: Acute lymphocytic leukaemia
     Dosage: 36 MG, ON DAYS 1-14 AND 29-42
     Route: 048
     Dates: start: 20200719, end: 20200829

REACTIONS (3)
  - Streptococcal sepsis [Recovered/Resolved]
  - Pseudomonal sepsis [Recovered/Resolved]
  - Febrile bone marrow aplasia [Recovered/Resolved]

NARRATIVE: CASE EVENT DATE: 20200829
